FAERS Safety Report 16069754 (Version 2)
Quarter: 2019Q1

REPORT INFORMATION
  Report Type: Spontaneous
  Country: US (occurrence: US)
  Receive Date: 20190314
  Receipt Date: 20190315
  Transmission Date: 20190418
  Serious: No
  Sender: FDA-Public Use
  Company Number: US-009507513-1902USA004529

PATIENT
  Age: 78 Year
  Sex: Female

DRUGS (1)
  1. ASMANEX [Suspect]
     Active Substance: MOMETASONE FUROATE
     Indication: ASTHMA
     Dosage: ONE INHALATION/ EVERY EVENING (STRENGTH 220 MCG, 60 DOSE)
     Route: 055

REACTIONS (3)
  - Product quality issue [Not Recovered/Not Resolved]
  - Poor quality device used [Unknown]
  - Lower respiratory tract congestion [Not Recovered/Not Resolved]

NARRATIVE: CASE EVENT DATE: 20190131
